FAERS Safety Report 11338531 (Version 1)
Quarter: 2015Q3

REPORT INFORMATION
  Report Type: Spontaneous
  Country: US (occurrence: US)
  Receive Date: 20150803
  Receipt Date: 20150803
  Transmission Date: 20151125
  Serious: No
  Sender: FDA-Public Use
  Company Number: US-ELI_LILLY_AND_COMPANY-US200710004439

PATIENT
  Age: 15 Year
  Sex: Female

DRUGS (4)
  1. SINGULAIR [Concomitant]
     Active Substance: MONTELUKAST SODIUM
     Route: 048
  2. STRATTERA [Suspect]
     Active Substance: ATOMOXETINE HYDROCHLORIDE
     Indication: ATTENTION DEFICIT/HYPERACTIVITY DISORDER
     Dosage: 18 MG, UNK
     Dates: end: 2007
  3. XANAX [Concomitant]
     Active Substance: ALPRAZOLAM
     Dosage: 0.25 UNK, AS NEEDED
     Route: 048
  4. STRATTERA [Suspect]
     Active Substance: ATOMOXETINE HYDROCHLORIDE
     Dosage: 10 MG, UNK
     Dates: start: 2007, end: 200710

REACTIONS (1)
  - Hyperhidrosis [Recovered/Resolved]

NARRATIVE: CASE EVENT DATE: 200710
